FAERS Safety Report 9708325 (Version 3)
Quarter: 2014Q1

REPORT INFORMATION
  Report Type: Spontaneous
  Country: FR (occurrence: FR)
  Receive Date: 20131125
  Receipt Date: 20140313
  Transmission Date: 20141002
  Serious: Yes (Hospitalization, Other)
  Sender: FDA-Public Use
  Company Number: FR-PFIZER INC-2013331793

PATIENT
  Age: 63 Year
  Sex: Male

DRUGS (8)
  1. TRIATEC [Suspect]
     Dosage: 2.5 MG, DAILY
     Dates: end: 20130801
  2. TRIATEC [Suspect]
     Dosage: 5 MG, DAILY
     Dates: start: 20130801, end: 20130829
  3. EUCREAS [Suspect]
     Dosage: TWICE A DAY
     Dates: start: 20130801, end: 20130829
  4. ZOCOR [Suspect]
     Dosage: 20 MG, DAILY
     Dates: end: 20130829
  5. DIAMICRON [Suspect]
     Dosage: 30 MG, DAILY
     Route: 065
     Dates: end: 20130829
  6. TEMERIT [Suspect]
     Dosage: 5 MG, DAILY
     Dates: end: 20130829
  7. IXPRIM [Suspect]
     Indication: ROTATOR CUFF SYNDROME
     Dosage: AS NEEDED
     Dates: start: 20130822, end: 20130829
  8. LERCAN [Concomitant]
     Dosage: UNK
     Dates: end: 20130829

REACTIONS (8)
  - Renal failure acute [Recovered/Resolved]
  - Hyperkalaemia [Recovered/Resolved]
  - Tubulointerstitial nephritis [Recovered/Resolved]
  - Lipase increased [Recovered/Resolved]
  - Atrioventricular block [Unknown]
  - Cardiac failure [Unknown]
  - Cardiac murmur [Unknown]
  - Rotator cuff syndrome [Unknown]
